FAERS Safety Report 21852799 (Version 1)
Quarter: 2023Q1

REPORT INFORMATION
  Report Type: Spontaneous
  Country: US (occurrence: None)
  Receive Date: 20230111
  Receipt Date: 20230111
  Transmission Date: 20230417
  Serious: Yes (Other)
  Sender: FDA-Public Use
  Company Number: None

PATIENT
  Sex: Male

DRUGS (2)
  1. ABIRATERONE ACETATE [Suspect]
     Active Substance: ABIRATERONE ACETATE
     Indication: Prostate cancer
     Dosage: FREQUENCY : AS DIRECTED;?TAKE 4 TABLETS BY MOUTH DAILY ON AN EMPTY STOMACH 1 HOUR BEFORE OR 2 HOURS
     Route: 048
     Dates: start: 20210712
  2. ABIRATERONE ACETATE [Suspect]
     Active Substance: ABIRATERONE ACETATE
     Dosage: FREQUENCY : AS DIRECTED;?
     Route: 048
     Dates: start: 20210712

REACTIONS (1)
  - Limb reconstructive surgery [None]
